FAERS Safety Report 8496597-5 (Version None)
Quarter: 2012Q3

REPORT INFORMATION
  Report Type: 
  Country: None (occurrence: None)
  Receive Date: 20120709
  Receipt Date: 20120628
  Transmission Date: 20120928
  Serious: Yes (Other)
  Sender: FDA-Public Use
  Company Number: GB-PERRIGO-12GB005534

PATIENT
  Age: 58 Year
  Sex: Female
  Weight: 70 kg

DRUGS (4)
  1. CETIRIZINE HCL [Suspect]
     Indication: SEASONAL ALLERGY
     Dosage: 1 DF, QD
     Route: 048
     Dates: start: 20120526, end: 20120604
  2. LISINOPRIL [Concomitant]
     Indication: BLOOD PRESSURE
     Dosage: UNK
     Route: 048
     Dates: start: 20000101
  3. CETIRIZINE HCL [Suspect]
     Dosage: 1 DF, QD
     Route: 048
     Dates: start: 20110501, end: 20110601
  4. ATENOLOL [Concomitant]
     Indication: PALPITATIONS
     Dosage: UNK
     Route: 048
     Dates: start: 20020101

REACTIONS (1)
  - INSOMNIA [None]
